FAERS Safety Report 18186662 (Version 2)
Quarter: 2020Q4

REPORT INFORMATION
  Report Type: Spontaneous
  Country: US (occurrence: US)
  Receive Date: 20200824
  Receipt Date: 20201029
  Transmission Date: 20210113
  Serious: No
  Sender: FDA-Public Use
  Company Number: US-PFIZER INC-2020322738

PATIENT
  Age: 55 Year
  Sex: Female

DRUGS (1)
  1. XELJANZ XR [Suspect]
     Active Substance: TOFACITINIB CITRATE
     Dosage: 11 MG
     Dates: start: 20200723

REACTIONS (11)
  - Blood cholesterol abnormal [Unknown]
  - Headache [Unknown]
  - Blood glucose abnormal [Unknown]
  - Dizziness [Unknown]
  - Hepatic enzyme increased [Unknown]
  - Oropharyngeal pain [Unknown]
  - Blood test abnormal [Unknown]
  - Blood triglycerides abnormal [Unknown]
  - Illness [Unknown]
  - Conjunctivitis [Unknown]
  - Fatigue [Unknown]

NARRATIVE: CASE EVENT DATE: 2020
